FAERS Safety Report 5241116-X (Version None)
Quarter: 2007Q1

REPORT INFORMATION
  Report Type: 
  Country: None (occurrence: None)
  Receive Date: 20070214
  Receipt Date: 20070214
  Transmission Date: 20070707
  Serious: Yes (Death)
  Sender: FDA-Public Use
  Company Number: None

PATIENT
  Age: 63 Year
  Sex: Male
  Weight: 101 kg

DRUGS (14)
  1. TARCEVA [Suspect]
     Indication: METASTATIC SQUAMOUS CELL CARCINOMA
     Dosage: 150 MG DAILY
     Dates: start: 20061204, end: 20070109
  2. BEVACIZUMAB [Suspect]
     Indication: METASTATIC SQUAMOUS CELL CARCINOMA
     Dosage: 15 MG/KG IV, Q3WEEKS
     Route: 042
     Dates: start: 20061204, end: 20061227
  3. COMBIVENT [Concomitant]
  4. DURAGESIC [Concomitant]
  5. LASIX [Concomitant]
  6. LEVOXYL [Concomitant]
  7. NADOLOL [Concomitant]
  8. OXYCODONE HCL [Concomitant]
  9. REGLAN [Concomitant]
  10. SALAGEN [Concomitant]
  11. SPIRONOLACTONE [Concomitant]
  12. TIMOPTIC [Concomitant]
  13. XANAX [Concomitant]
  14. ZOFRAN [Concomitant]

REACTIONS (1)
  - DISEASE PROGRESSION [None]
